FAERS Safety Report 19297386 (Version 2)
Quarter: 2021Q2

REPORT INFORMATION
  Report Type: Report from Study
  Country: CA (occurrence: CA)
  Receive Date: 20210524
  Receipt Date: 20210607
  Transmission Date: 20210717
  Serious: Yes (Other)
  Sender: FDA-Public Use
  Company Number: PHHY2018CA061906

PATIENT
  Age: 12 Year
  Sex: Female

DRUGS (14)
  1. ILARIS [Suspect]
     Active Substance: CANAKINUMAB
     Dosage: 1 DF (280), Q4W
     Route: 058
     Dates: start: 20180329
  2. ILARIS [Suspect]
     Active Substance: CANAKINUMAB
     Dosage: 300 MG, QMO
     Route: 058
     Dates: start: 20180718
  3. PREDNISONE. [Concomitant]
     Active Substance: PREDNISONE
     Dosage: 3 MG, QD
     Route: 065
  4. METHOTREXATE. [Concomitant]
     Active Substance: METHOTREXATE
     Indication: PRODUCT USED FOR UNKNOWN INDICATION
     Dosage: UNK, QW
     Route: 058
  5. ILARIS [Suspect]
     Active Substance: CANAKINUMAB
     Dosage: 300 MG, Q4W
     Route: 058
     Dates: start: 20200716
  6. PREDNISONE. [Concomitant]
     Active Substance: PREDNISONE
     Indication: PRODUCT USED FOR UNKNOWN INDICATION
     Dosage: 80 MG, QD
     Route: 065
  7. CYCLOSPORINE. [Concomitant]
     Active Substance: CYCLOSPORINE
     Indication: PRODUCT USED FOR UNKNOWN INDICATION
     Dosage: 3 MG, QD
     Route: 065
  8. ILARIS [Suspect]
     Active Substance: CANAKINUMAB
     Indication: STILL^S DISEASE
     Dosage: 1 DF (300 MG), Q4W
     Route: 058
     Dates: start: 20180305
  9. ILARIS [Suspect]
     Active Substance: CANAKINUMAB
     Dosage: 300 MG, Q4W
     Route: 058
     Dates: start: 20200102
  10. METHOTREXATE. [Suspect]
     Active Substance: METHOTREXATE
     Indication: PRODUCT USED FOR UNKNOWN INDICATION
     Dosage: UNK
     Route: 065
  11. INDOMETHACIN. [Concomitant]
     Active Substance: INDOMETHACIN
     Indication: PRODUCT USED FOR UNKNOWN INDICATION
     Dosage: UNK
     Route: 065
  12. ILARIS [Suspect]
     Active Substance: CANAKINUMAB
     Dosage: 300 MG, Q4W
     Route: 058
     Dates: start: 20200130
  13. ILARIS [Suspect]
     Active Substance: CANAKINUMAB
     Dosage: 300 MG, Q4W (EVERY 28 DAYS)
     Route: 058
     Dates: start: 20190523
  14. ILARIS [Suspect]
     Active Substance: CANAKINUMAB
     Dosage: 300 MG, Q4W
     Route: 058
     Dates: start: 20200618

REACTIONS (11)
  - Therapeutic product effect decreased [Unknown]
  - Pruritus [Unknown]
  - Condition aggravated [Unknown]
  - Arthropod bite [Unknown]
  - Skin lesion [Unknown]
  - Injection site rash [Recovered/Resolved]
  - Still^s disease [Unknown]
  - Scratch [Unknown]
  - Erythema [Unknown]
  - Hepatic enzyme increased [Unknown]
  - Rash [Recovering/Resolving]

NARRATIVE: CASE EVENT DATE: 20190615
